FAERS Safety Report 8013422-7 (Version None)
Quarter: 2011Q4

REPORT INFORMATION
  Report Type: 
  Country: None (occurrence: None)
  Receive Date: 20111229
  Receipt Date: 20111221
  Transmission Date: 20120403
  Serious: Yes (Other)
  Sender: FDA-Public Use
  Company Number: US-BAYER-2011-101770

PATIENT
  Age: 45 Year
  Sex: Female
  Weight: 83 kg

DRUGS (4)
  1. MIRENA [Suspect]
     Indication: VAGINAL HAEMORRHAGE
     Dosage: 20 ?G/D, UNK
     Route: 015
     Dates: start: 20111115
  2. PROMETRIUM [Concomitant]
     Dosage: UNK
     Route: 048
     Dates: start: 20100212
  3. MIRENA [Suspect]
     Indication: CONTRACEPTION
     Dosage: 20 ?G/D, UNK
     Route: 015
     Dates: start: 20100312, end: 20110926
  4. TRAZODONE HCL [Concomitant]
     Indication: INSOMNIA
     Dosage: UNK
     Route: 048
     Dates: start: 20100312

REACTIONS (2)
  - DEVICE EXPULSION [None]
  - VAGINAL HAEMORRHAGE [None]
